FAERS Safety Report 4399008-4 (Version None)
Quarter: 2004Q3

REPORT INFORMATION
  Report Type: 
  Country: None (occurrence: None)
  Receive Date: 20040712
  Receipt Date: 20040617
  Transmission Date: 20050211
  Serious: Yes (Other)
  Sender: FDA-Public Use
  Company Number: A03200402010

PATIENT

DRUGS (2)
  1. UROXATRAL [Suspect]
     Dosage: ORAL
     Route: 048
  2. OTHER MEDICATIONS NOS [Concomitant]

REACTIONS (1)
  - HALLUCINATION, VISUAL [None]
